FAERS Safety Report 6785736-X (Version None)
Quarter: 2010Q2

REPORT INFORMATION
  Report Type: 
  Country: None (occurrence: None)
  Receive Date: 20100622
  Receipt Date: 20100622
  Transmission Date: 20101027
  Serious: No
  Sender: FDA-Public Use
  Company Number: None

PATIENT
  Age: 50 Year
  Sex: Male
  Weight: 90.7194 kg

DRUGS (1)
  1. AMBIEN [Suspect]
     Indication: INSOMNIA
     Dosage: 10MG PRN PO
     Route: 048
     Dates: start: 20090101, end: 20090201

REACTIONS (2)
  - DRUG EFFECT INCREASED [None]
  - HALLUCINATION [None]
